FAERS Safety Report 6543501-2 (Version None)
Quarter: 2010Q1

REPORT INFORMATION
  Report Type: 
  Country: None (occurrence: None)
  Receive Date: 20100120
  Receipt Date: 20100112
  Transmission Date: 20100710
  Serious: Yes (Other)
  Sender: FDA-Public Use
  Company Number: B0620147A

PATIENT
  Sex: Male

DRUGS (4)
  1. EPIVIR [Suspect]
     Indication: HIV INFECTION
     Dosage: 150MG TWICE PER DAY
     Route: 048
  2. ZERIT [Suspect]
     Indication: HIV INFECTION
     Route: 048
  3. STOCRIN [Suspect]
     Indication: HIV INFECTION
     Route: 048
  4. NEVIRAPINE [Suspect]

REACTIONS (2)
  - HALLUCINATION, VISUAL [None]
  - PSYCHIATRIC SYMPTOM [None]
